FAERS Safety Report 4943458-1 (Version None)
Quarter: 2006Q1

REPORT INFORMATION
  Report Type: 
  Country: None (occurrence: None)
  Receive Date: 20060309
  Receipt Date: 20060224
  Transmission Date: 20060701
  Serious: Yes (Hospitalization)
  Sender: FDA-Public Use
  Company Number: 2006028061

PATIENT
  Age: 65 Year
  Sex: Female
  Weight: 83.9154 kg

DRUGS (6)
  1. CELEBREX [Suspect]
     Indication: OSTEOARTHRITIS
     Dosage: 200 MG (200 MG, 1 IN 1 D)
  2. BENICAR [Concomitant]
  3. ATENOLOL [Concomitant]
  4. HYDROCHLOROTHIAZIDE [Concomitant]
  5. PREVACID [Concomitant]
  6. LORAZEPAM [Concomitant]

REACTIONS (4)
  - BLOOD PRESSURE FLUCTUATION [None]
  - DRUG INEFFECTIVE [None]
  - HYPOTENSION [None]
  - LOSS OF CONSCIOUSNESS [None]
